FAERS Safety Report 24081631 (Version 1)
Quarter: 2024Q3

REPORT INFORMATION
  Report Type: Spontaneous
  Country: DE (occurrence: DE)
  Receive Date: 20240712
  Receipt Date: 20240712
  Transmission Date: 20241016
  Serious: Yes (Congenital Anomaly, Other)
  Sender: TORRENT
  Company Number: None

PATIENT
  Sex: Female
  Weight: 3 kg

DRUGS (3)
  1. ARIPIPRAZOLE [Suspect]
     Active Substance: ARIPIPRAZOLE
     Indication: Product used for unknown indication
     Dosage: MOTHER DOSE:20 [MG/D] FROM 14/12/2022 TO 02/10/2023 FOR 292 DAYS
     Route: 064
  2. CLOZAPINE [Suspect]
     Active Substance: CLOZAPINE
     Indication: Product used for unknown indication
     Dosage: MOTHER^S DOSE: 500 MG/D/ 75-100-75-250 FROM 14-DEC-2022 / 02-OCT-2023 FOR 292 DAYS
     Route: 064
  3. LEVOTHYROXINE SODIUM [Concomitant]
     Active Substance: LEVOTHYROXINE SODIUM
     Indication: Product used for unknown indication
     Dosage: MOTHER DOSE-25 [G/D] FROM 14/12/2022 TO 02/10/2023 FOR 292 DAYS
     Route: 064

REACTIONS (3)
  - Congenital nystagmus [Not Recovered/Not Resolved]
  - Congenital eye disorder [Not Recovered/Not Resolved]
  - Foetal exposure during pregnancy [Unknown]
